FAERS Safety Report 20948379 (Version 1)
Quarter: 2022Q2

REPORT INFORMATION
  Report Type: Spontaneous
  Country: FR (occurrence: FR)
  Receive Date: 20220611
  Receipt Date: 20220611
  Transmission Date: 20220721
  Serious: Yes (Hospitalization)
  Sender: FDA-Public Use
  Company Number: None

PATIENT
  Age: 95 Year
  Sex: Female
  Weight: 44.7 kg

DRUGS (6)
  1. TRAMADOL HYDROCHLORIDE [Suspect]
     Active Substance: TRAMADOL HYDROCHLORIDE
     Indication: Pain
     Dosage: YEARS , TRAMADOL (CHLORHYDRATE DE) , UNIT DOSE : 250 MILLIGRAM , FREQUENCY TIME : 1DAYS
     Route: 048
     Dates: end: 20220420
  2. CANDESARTAN CILEXETIL [Suspect]
     Active Substance: CANDESARTAN CILEXETIL
     Indication: Hypertension
     Dosage: UNIT DOSE : 16 MG , FREQUENCY TIME : 1 DAYS
     Route: 048
     Dates: end: 20220420
  3. ASCORBIC ACID\FERROUS SULFATE [Suspect]
     Active Substance: ASCORBIC ACID\FERROUS SULFATE
     Indication: Product used for unknown indication
     Dosage: UNIT DOSE : 1 DF , FREQUENCY TIME : 1 DAYS
     Route: 048
     Dates: end: 20220420
  4. IXPRIM [Suspect]
     Active Substance: ACETAMINOPHEN\TRAMADOL HYDROCHLORIDE
     Indication: Pain
     Dosage: YEARS
     Route: 048
     Dates: end: 20220420
  5. EXEMESTANE [Concomitant]
     Active Substance: EXEMESTANE
  6. CHOLECALCIFEROL [Concomitant]
     Active Substance: CHOLECALCIFEROL

REACTIONS (1)
  - Fall [Recovered/Resolved]

NARRATIVE: CASE EVENT DATE: 20220401
